FAERS Safety Report 6306393-2 (Version None)
Quarter: 2009Q3

REPORT INFORMATION
  Report Type: 
  Country: None (occurrence: None)
  Receive Date: 20090812
  Receipt Date: 20090806
  Transmission Date: 20100115
  Serious: Yes (Death)
  Sender: FDA-Public Use
  Company Number: US-ELI_LILLY_AND_COMPANY-2006PV020890

PATIENT
  Sex: Female

DRUGS (3)
  1. EXENATIDE [Suspect]
     Indication: TYPE 2 DIABETES MELLITUS
     Dosage: 10 UG, 2/D
     Route: 058
     Dates: start: 20060820
  2. EXENATIDE [Suspect]
     Dosage: 5 UG, 2/D
     Route: 058
     Dates: start: 20060601, end: 20060819
  3. AMARYL [Concomitant]
     Dosage: 2 MG, 2/D
     Dates: start: 20040101

REACTIONS (4)
  - BLOOD GLUCOSE INCREASED [None]
  - DEATH [None]
  - STRESS [None]
  - THYROID NEOPLASM [None]
